FAERS Safety Report 21417521 (Version 1)
Quarter: 2022Q4

REPORT INFORMATION
  Report Type: Spontaneous
  Country: US (occurrence: US)
  Receive Date: 20221006
  Receipt Date: 20221006
  Transmission Date: 20230113
  Serious: No
  Sender: FDA-Public Use
  Company Number: US-SUN PHARMACEUTICAL INDUSTRIES LTD-2022R1-336699

PATIENT
  Sex: Female

DRUGS (1)
  1. CEQUA [Suspect]
     Active Substance: CYCLOSPORINE
     Indication: Product used for unknown indication
     Dosage: TWICE A DAY, ONE IN THE MORNING AND ONE IN THE EVENING
     Route: 065

REACTIONS (4)
  - Product dose omission issue [Unknown]
  - Asthenopia [Unknown]
  - Photophobia [Unknown]
  - Eye irritation [Unknown]
